FAERS Safety Report 24663290 (Version 1)
Quarter: 2024Q4

REPORT INFORMATION
  Report Type: Spontaneous
  Country: CN (occurrence: CN)
  Receive Date: 20241126
  Receipt Date: 20241126
  Transmission Date: 20250114
  Serious: Yes (Hospitalization)
  Sender: ORGANON
  Company Number: CN-ORGANON-O2411CHN001239

PATIENT
  Age: 70 Year
  Sex: Female

DRUGS (1)
  1. DIPROSPAN [Suspect]
     Active Substance: BETAMETHASONE DIPROPIONATE\BETAMETHASONE SODIUM PHOSPHATE
     Indication: Herpes zoster
     Dosage: INTRAMUSCULAR INJECTION, 1ML, QD
     Route: 030
     Dates: start: 20240819, end: 20240829

REACTIONS (11)
  - Secondary adrenocortical insufficiency [Unknown]
  - Asthenia [Recovering/Resolving]
  - Sacral pain [Unknown]
  - Arthralgia [Unknown]
  - Decreased appetite [Recovering/Resolving]
  - Petechiae [Not Recovered/Not Resolved]
  - Dry skin [Unknown]
  - Ecchymosis [Unknown]
  - Skin exfoliation [Unknown]
  - Haemorrhage subcutaneous [Unknown]
  - Product use in unapproved indication [Unknown]

NARRATIVE: CASE EVENT DATE: 20241010
